FAERS Safety Report 5266233-X (Version None)
Quarter: 2007Q1

REPORT INFORMATION
  Report Type: 
  Country: None (occurrence: None)
  Receive Date: 20070315
  Receipt Date: 20070305
  Transmission Date: 20070707
  Serious: Yes (Other)
  Sender: FDA-Public Use
  Company Number: FR-GLAXOSMITHKLINE-B0461083A

PATIENT
  Age: 60 Year
  Sex: Female

DRUGS (4)
  1. LAMICTAL [Suspect]
     Indication: TEMPORAL LOBE EPILEPSY
     Route: 048
     Dates: start: 20060801
  2. URBANYL [Concomitant]
     Indication: TEMPORAL LOBE EPILEPSY
     Route: 065
  3. PILOCARPINE [Concomitant]
     Indication: DRY MOUTH
     Route: 065
     Dates: start: 20060101
  4. HOMEOPATHY [Concomitant]
     Indication: ANXIETY
     Route: 065

REACTIONS (7)
  - AGITATION [None]
  - ANXIETY [None]
  - EPILEPSY [None]
  - GASTROOESOPHAGEAL REFLUX DISEASE [None]
  - INSOMNIA [None]
  - NAUSEA [None]
  - OBSESSIVE THOUGHTS [None]
